FAERS Safety Report 17224625 (Version 1)
Quarter: 2020Q1

REPORT INFORMATION
  Report Type: Spontaneous
  Country: US (occurrence: US)
  Receive Date: 20191231
  Receipt Date: 20191231
  Transmission Date: 20200409
  Serious: Yes (Death)
  Sender: FDA-Public Use
  Company Number: None

PATIENT
  Age: 62 Year
  Sex: Female
  Weight: 81.45 kg

DRUGS (13)
  1. PANTOPRAZOLE SODIUM. [Concomitant]
     Active Substance: PANTOPRAZOLE SODIUM
  2. CYMBALTA [Concomitant]
     Active Substance: DULOXETINE HYDROCHLORIDE
  3. ROPINIROLE HCL [Concomitant]
     Active Substance: ROPINIROLE HYDROCHLORIDE
  4. CRESTOR [Concomitant]
     Active Substance: ROSUVASTATIN CALCIUM
  5. LASIX [Concomitant]
     Active Substance: FUROSEMIDE
  6. MIRALAX [Concomitant]
     Active Substance: POLYETHYLENE GLYCOL 3350
  7. ALBUTEROL SULFATE. [Concomitant]
     Active Substance: ALBUTEROL SULFATE
  8. COLACE [Concomitant]
     Active Substance: DOCUSATE SODIUM
  9. POTASSIUM CHLORIDE ER [Concomitant]
     Active Substance: POTASSIUM CHLORIDE
  10. AFINITOR [Suspect]
     Active Substance: EVEROLIMUS
     Indication: CARCINOID TUMOUR OF THE APPENDIX
     Route: 048
     Dates: start: 20191202, end: 20191224
  11. ELIQUIS [Concomitant]
     Active Substance: APIXABAN
  12. BREO ELLIPTA [Concomitant]
     Active Substance: FLUTICASONE FUROATE\VILANTEROL TRIFENATATE
  13. MORPHINE SULFATE ER [Concomitant]
     Active Substance: MORPHINE SULFATE

REACTIONS (1)
  - Death [None]

NARRATIVE: CASE EVENT DATE: 20191224
